FAERS Safety Report 17467304 (Version 2)
Quarter: 2020Q1

REPORT INFORMATION
  Report Type: Spontaneous
  Country: US (occurrence: US)
  Receive Date: 20200227
  Receipt Date: 20200312
  Transmission Date: 20200409
  Serious: No
  Sender: FDA-Public Use
  Company Number: US-PFIZER INC-2020082699

PATIENT
  Age: 61 Year
  Sex: Female
  Weight: 50.8 kg

DRUGS (4)
  1. ADVIL [Suspect]
     Active Substance: IBUPROFEN
     Indication: BACK PAIN
     Dosage: 20 MG, UNK(1X OR 2X DAILY)
     Dates: start: 20200216
  2. ADVIL [Suspect]
     Active Substance: IBUPROFEN
     Indication: ARTHRITIS
     Dosage: 200 MG, UNK (TAKE ONE EVERY 4-6 HOURS)
     Dates: start: 2005
  3. NADOLOL. [Concomitant]
     Active Substance: NADOLOL
     Indication: ATRIAL FIBRILLATION
     Dosage: 20 MG, 1X/DAY
     Route: 048
     Dates: start: 1997
  4. ADVIL [Suspect]
     Active Substance: IBUPROFEN
     Indication: TENDONITIS

REACTIONS (3)
  - Synovial cyst [Not Recovered/Not Resolved]
  - Arthritis [Not Recovered/Not Resolved]
  - Gastrooesophageal reflux disease [Recovered/Resolved]

NARRATIVE: CASE EVENT DATE: 2005
